FAERS Safety Report 9193015 (Version 2)
Quarter: 2013Q2

REPORT INFORMATION
  Report Type: Spontaneous
  Country: US (occurrence: None)
  Receive Date: 20120703
  Receipt Date: 20121031
  Transmission Date: 20140414
  Serious: No
  Sender: FDA-Public Use
  Company Number: PHEH2012US006654

PATIENT
  Age: 56 Year
  Sex: Female
  Weight: 85.3 kg

DRUGS (4)
  1. GILENYA (FTY) CAPSULE [Suspect]
     Indication: MULTIPLE SCLEROSIS
     Route: 048
     Dates: start: 20120217, end: 20120315
  2. HUMALOG (INSULIN LISPRO) [Concomitant]
  3. HUMULIN (INSULIN HUMAN, INSULIN ISOPHANE, HUMAN BIOSYNTHETIC) [Concomitant]
  4. BACLOFEN (BACLOFEN) (BACLOFEN) [Concomitant]

REACTIONS (5)
  - Nausea [None]
  - Vomiting [None]
  - Dysstasia [None]
  - Gait disturbance [None]
  - Multiple sclerosis relapse [None]
